FAERS Safety Report 7311940-8 (Version None)
Quarter: 2011Q1

REPORT INFORMATION
  Report Type: 
  Country: None (occurrence: None)
  Receive Date: 20110224
  Receipt Date: 20110222
  Transmission Date: 20110831
  Serious: Yes (Death)
  Sender: FDA-Public Use
  Company Number: PHHY2011US12469

PATIENT
  Sex: Female

DRUGS (22)
  1. PHENERGAN EXPECTORANT W/ CODEINE [Concomitant]
     Indication: COUGH
     Dosage: 3 TIMES DAILY
  2. TRIAMTERENE AND HYDROCHLOROTHIAZID [Concomitant]
     Dosage: 37.5-25, UNK
  3. LANTUS [Concomitant]
     Dosage: 50 UNIT IN MORNING AND 20 UNITS AT NIGHT
  4. COUMADIN [Concomitant]
     Dosage: 2 MG, DAILY
  5. AFINITOR [Suspect]
     Indication: RENAL CANCER METASTATIC
     Dosage: 10 MG, QD
     Route: 048
     Dates: start: 20100101
  6. SYMBICORT [Concomitant]
     Dosage: 160-4.5, UNK
  7. INSULIN [Concomitant]
  8. ASPIRIN [Concomitant]
     Dosage: 81 MG, UNK
  9. KEPPRA [Concomitant]
     Dosage: 500 MG, BID
  10. BENZOYL TESSALON [Concomitant]
     Dosage: 100 MG, 2-3 TIMES DAILY
  11. FERROUS SULFATE TAB [Concomitant]
     Dosage: 300 MG, BID
  12. PREDNISONE [Concomitant]
     Dosage: 20 MG, BID
  13. ATENOLOL [Concomitant]
     Dosage: 50 MG, UNK
  14. GLYBURIDE [Concomitant]
     Dosage: 5 MG, UNK
  15. CLOTRIMAZOLE [Concomitant]
     Dosage: TID
  16. DILANTIN   EXTENDED RELEASE [Concomitant]
     Dosage: 100 MG, TID
  17. FLORINEF [Concomitant]
     Dosage: 0.1 MG, Q 24 HRS
  18. MAGNESIUM CHLORIDE [Concomitant]
     Dosage: 64 MG, TID
  19. FELODIPINE [Concomitant]
     Dosage: 10 MG, DAILY
  20. ALBUTEROL SULFATE [Concomitant]
     Dosage: 1-2 PUFFS EVERY 6 HOURS
  21. ZOFRAN [Concomitant]
     Dosage: 8 MG, Q 8 HOURS
  22. SYMBICORT [Concomitant]
     Dosage: 80-4.5, UNK

REACTIONS (10)
  - HAEMATOCRIT DECREASED [None]
  - HEART RATE INCREASED [None]
  - HAEMOGLOBIN DECREASED [None]
  - NEOPLASM MALIGNANT [None]
  - BLOOD PRESSURE DECREASED [None]
  - WHITE BLOOD CELL COUNT INCREASED [None]
  - OEDEMA PERIPHERAL [None]
  - METASTASES TO CENTRAL NERVOUS SYSTEM [None]
  - BLOOD ALBUMIN DECREASED [None]
  - HEADACHE [None]
